FAERS Safety Report 8169100-7 (Version None)
Quarter: 2012Q1

REPORT INFORMATION
  Report Type: 
  Country: None (occurrence: None)
  Receive Date: 20120227
  Receipt Date: 20120224
  Transmission Date: 20120608
  Serious: No
  Sender: FDA-Public Use
  Company Number: US-PFIZER INC-2012049851

PATIENT
  Sex: Female
  Weight: 103 kg

DRUGS (7)
  1. LYRICA [Suspect]
     Indication: FIBROMYALGIA
     Dosage: 100 MG, 2X/DAY
     Dates: start: 20110919
  2. CYMBALTA [Suspect]
     Indication: FIBROMYALGIA
     Dosage: 60 MG, DAILY
     Dates: start: 20110620
  3. NEXIUM [Suspect]
     Indication: GASTROOESOPHAGEAL REFLUX DISEASE
     Dosage: 40 MG, DAILY
     Dates: start: 20120101
  4. LEVOTHYROXINE SODIUM [Suspect]
     Indication: HYPOTHYROIDISM
     Dosage: 25 UG, DAILY
     Dates: start: 20110829
  5. MELOXICAM [Suspect]
     Indication: BACK PAIN
     Dosage: 15 MG, DAILY
     Dates: start: 20110919
  6. VITAMIN D [Suspect]
     Indication: VITAMIN D DEFICIENCY
     Dosage: 50000 IU, 2X/WEEK
     Dates: start: 20110606
  7. NEURONTIN [Suspect]
     Indication: FIBROMYALGIA
     Dosage: 300 MG, 2X/DAY
     Dates: start: 20110822

REACTIONS (3)
  - HEADACHE [None]
  - FEELING ABNORMAL [None]
  - NASOPHARYNGITIS [None]
